FAERS Safety Report 8829805 (Version 1)
Quarter: 2012Q4

REPORT INFORMATION
  Report Type: Spontaneous
  Country: US (occurrence: None)
  Receive Date: 20121005
  Receipt Date: 20121005
  Transmission Date: 20130627
  Serious: Yes (Hospitalization)
  Sender: FDA-Public Use
  Company Number: None

PATIENT
  Age: 67 Year
  Sex: Female
  Weight: 78.02 kg

DRUGS (1)
  1. BOTOX [Suspect]
     Route: 030
     Dates: start: 20120730, end: 20120730

REACTIONS (16)
  - Dyskinesia [None]
  - Throat tightness [None]
  - Asthenia [None]
  - Movement disorder [None]
  - Migraine [None]
  - Cystitis [None]
  - Blood pressure fluctuation [None]
  - Pulse abnormal [None]
  - Heart rate irregular [None]
  - Pallor [None]
  - Cold sweat [None]
  - Blood pressure decreased [None]
  - Extrasystoles [None]
  - Palpitations [None]
  - Hypertension [None]
  - Cardiac disorder [None]
